FAERS Safety Report 4585465-7 (Version None)
Quarter: 2005Q1

REPORT INFORMATION
  Report Type: 
  Country: None (occurrence: None)
  Receive Date: 20050214
  Receipt Date: 20050202
  Transmission Date: 20050727
  Serious: Yes (Life-Threatening, Hospitalization, Other)
  Sender: FDA-Public Use
  Company Number: USA-2005-0018658

PATIENT
  Age: 62 Year
  Sex: Male
  Weight: 88.5 kg

DRUGS (16)
  1. OXYCODONE HCL [Suspect]
     Indication: PAIN
     Dosage: 5.5 MG PRN, ORAL
     Route: 048
     Dates: start: 20041020
  2. NTG(GLYCERYL TRINITRATE) [Suspect]
     Dosage: 356 ML, INTRAVENOUS
     Route: 042
     Dates: start: 20041018, end: 20041019
  3. TYLENOL W/ CODEINE [Concomitant]
  4. ALBUTEROL [Concomitant]
  5. IPRAPROPTIUM(IPRATROPIUM) [Concomitant]
  6. AMIODARONE HCL [Concomitant]
  7. ASPIRIN [Concomitant]
  8. DOCUSATE (DOCUSATE) [Concomitant]
  9. METOPROLOL TARTRATE [Concomitant]
  10. OMEPRAZOLE [Concomitant]
  11. SIMVASTTIN(SIMVASTATIN) [Concomitant]
  12. SURCRALAN (SUCRALAFATE) [Concomitant]
  13. POTASSIUM CHLORIDE [Concomitant]
  14. METRONIDAZOLE [Concomitant]
  15. FUROSEMIDE [Concomitant]
  16. HEPARIN [Concomitant]

REACTIONS (13)
  - ANASTOMOTIC LEAK [None]
  - BLOOD CULTURE POSITIVE [None]
  - EMBOLISM [None]
  - ENTEROCOCCAL INFECTION [None]
  - ESCHERICHIA INFECTION [None]
  - INTESTINAL GANGRENE [None]
  - INTESTINAL ISCHAEMIA [None]
  - LARGE INTESTINE PERFORATION [None]
  - MESENTERIC ARTERY EMBOLISM [None]
  - PERITONEAL INFECTION [None]
  - POSTOPERATIVE ILEUS [None]
  - RESPIRATORY FAILURE [None]
  - STAPHYLOCOCCAL INFECTION [None]
